FAERS Safety Report 9627972 (Version 2)
Quarter: 2013Q4

REPORT INFORMATION
  Report Type: Report from Study
  Country: US (occurrence: US)
  Receive Date: 20131016
  Receipt Date: 20131016
  Transmission Date: 20140711
  Serious: Yes (Other)
  Sender: FDA-Public Use
  Company Number: US-PFIZER INC-2011228827

PATIENT
  Age: 60 Year
  Sex: Male
  Weight: 90.7 kg

DRUGS (12)
  1. DILANTIN [Suspect]
     Indication: EPILEPSY
     Dosage: 10 TABLETS OF 50 MG IN A DAY
     Route: 048
     Dates: start: 201109, end: 20110924
  2. DILANTIN [Suspect]
     Dosage: 100 MG, 3 IN AM, 2 IN PM
  3. DILANTIN [Concomitant]
     Indication: EPILEPSY
     Dosage: 100 MG THREE CAPSULES IN THE MORNING AND TWO CAPSULES AT NIGHT
     Route: 048
  4. PENTOBARBITAL [Concomitant]
     Indication: EPILEPSY
     Dosage: 30 MG
  5. FLOMAX [Concomitant]
     Indication: PROSTATIC DISORDER
     Dosage: 0.4 MG, UNK
  6. LIPITOR [Concomitant]
     Indication: BLOOD CHOLESTEROL ABNORMAL
     Dosage: 80 MG, UNK
  7. PLAVIX [Concomitant]
     Indication: ANTICOAGULANT THERAPY
     Dosage: 75 MG, UNK
  8. OMEPRAZOLE [Concomitant]
     Indication: GASTROOESOPHAGEAL REFLUX DISEASE
     Dosage: 40 MG, UNK
  9. KLONOPIN [Concomitant]
     Dosage: UNK
  10. CELEXA [Concomitant]
     Dosage: UNK
  11. ASPIRIN [Concomitant]
  12. PRO-AIR [Concomitant]
     Dosage: UNK

REACTIONS (7)
  - Dysstasia [Unknown]
  - Anticonvulsant drug level increased [Unknown]
  - Nausea [Recovered/Resolved]
  - Malaise [Unknown]
  - Dizziness [Unknown]
  - Feeling abnormal [Unknown]
  - Fatigue [Unknown]
